FAERS Safety Report 7992694-9 (Version None)
Quarter: 2011Q4

REPORT INFORMATION
  Report Type: 
  Country: None (occurrence: None)
  Receive Date: 20111219
  Receipt Date: 20110720
  Transmission Date: 20120403
  Serious: No
  Sender: FDA-Public Use
  Company Number: US-ASTRAZENECA-2011SE43946

PATIENT
  Age: 48 Year
  Sex: Female

DRUGS (21)
  1. CRESTOR [Suspect]
     Route: 048
  2. OMEPRAZOLE [Concomitant]
     Route: 048
  3. WELLBUTRIN XL [Concomitant]
     Route: 048
  4. BUPROPION HYDROCHLORIDE [Concomitant]
     Route: 048
  5. CISPLATIN [Concomitant]
     Route: 048
  6. ASPIRIN [Concomitant]
     Route: 048
  7. AMLODIPINE [Concomitant]
     Route: 048
  8. LORATADINE [Concomitant]
     Route: 048
  9. LYRICA [Concomitant]
     Route: 048
  10. BENICAR HCT [Concomitant]
     Dosage: 20/12,5 MG DAILY
     Route: 048
  11. CA+VITAMIN D [Concomitant]
     Route: 048
  12. REMERON [Concomitant]
     Route: 048
  13. NEURONTIN [Concomitant]
     Route: 048
  14. GLIMEPIRIDE [Concomitant]
     Route: 048
  15. METFORMIN HCL [Concomitant]
     Route: 048
  16. CELEXA [Concomitant]
     Route: 048
  17. COLESE [Concomitant]
     Route: 048
  18. CELEXA [Concomitant]
     Route: 048
  19. LOSARTAN POTASSIUM [Concomitant]
     Route: 048
  20. HYDROCHLOROTHIAZIDE [Concomitant]
     Route: 048
  21. METDAX [Concomitant]
     Route: 048

REACTIONS (15)
  - HYPERTENSION [None]
  - DIABETIC NEUROPATHY [None]
  - CHRONIC OBSTRUCTIVE PULMONARY DISEASE [None]
  - HYPERLIPIDAEMIA [None]
  - INSOMNIA [None]
  - CONSTIPATION [None]
  - VITAMIN D DEFICIENCY [None]
  - OESOPHAGITIS [None]
  - HEPATIC STEATOSIS [None]
  - DRUG HYPERSENSITIVITY [None]
  - DIVERTICULUM [None]
  - DEPRESSION [None]
  - DIABETES MELLITUS [None]
  - OESOPHAGEAL STENOSIS [None]
  - OSTEOPENIA [None]
